FAERS Safety Report 11103288 (Version 1)
Quarter: 2015Q2

REPORT INFORMATION
  Report Type: Report from Study
  Country: BR (occurrence: BR)
  Receive Date: 20150511
  Receipt Date: 20150511
  Transmission Date: 20150821
  Serious: Yes (Other)
  Sender: FDA-Public Use
  Company Number: BR-BAYER-2015-197547

PATIENT
  Age: 48 Year
  Sex: Male

DRUGS (3)
  1. CYMBI [Concomitant]
     Indication: STRESS
     Dosage: 30 MG, QD
     Route: 048
     Dates: start: 2008
  2. BROMAZEPAM [Concomitant]
     Active Substance: BROMAZEPAM
     Indication: SLEEP DISORDER
     Dosage: 6 MG, QD
     Route: 048
     Dates: start: 201504
  3. BETAFERON [Suspect]
     Active Substance: INTERFERON BETA-1B
     Indication: RELAPSING-REMITTING MULTIPLE SCLEROSIS
     Dosage: 1 ML, QOD
     Route: 058
     Dates: start: 2008

REACTIONS (3)
  - Thinking abnormal [Recovered/Resolved]
  - Blindness transient [Recovered/Resolved]
  - Aphasia [Recovered/Resolved]

NARRATIVE: CASE EVENT DATE: 201504
